FAERS Safety Report 4929023-0 (Version None)
Quarter: 2006Q1

REPORT INFORMATION
  Report Type: 
  Country: None (occurrence: None)
  Receive Date: 20060301
  Receipt Date: 20060217
  Transmission Date: 20060701
  Serious: Yes (Other)
  Sender: FDA-Public Use
  Company Number: BR-ROCHE-437127

PATIENT
  Age: 40 Year
  Sex: Female
  Weight: 38.6 kg

DRUGS (3)
  1. CLONAZEPAM [Suspect]
     Indication: BIPOLAR DISORDER
     Route: 048
     Dates: start: 19950615
  2. LITHIUM CARBONATE [Suspect]
     Indication: BIPOLAR DISORDER
     Route: 048
     Dates: start: 19950615
  3. CARBAMAZEPINE [Suspect]
     Indication: BIPOLAR DISORDER
     Route: 048
     Dates: start: 19950615

REACTIONS (3)
  - ABORTION SPONTANEOUS [None]
  - DRUG EXPOSURE DURING PREGNANCY [None]
  - PREGNANCY [None]
